FAERS Safety Report 24879653 (Version 3)
Quarter: 2025Q1

REPORT INFORMATION
  Report Type: Spontaneous
  Country: DE (occurrence: DE)
  Receive Date: 20250123
  Receipt Date: 20250218
  Transmission Date: 20250408
  Serious: Yes (Other)
  Sender: ALEXION PHARMACEUTICALS
  Company Number: DE-MACLEODS PHARMA-MAC2025051034

PATIENT

DRUGS (23)
  1. ESOMEPRAZOLE [Suspect]
     Active Substance: ESOMEPRAZOLE
     Indication: Product used for unknown indication
     Route: 065
  2. BICALUTAMIDE [Suspect]
     Active Substance: BICALUTAMIDE
     Indication: Product used for unknown indication
     Route: 065
  3. ENZALUTAMIDE [Suspect]
     Active Substance: ENZALUTAMIDE
     Indication: Product used for unknown indication
     Route: 065
  4. ENZALUTAMIDE [Suspect]
     Active Substance: ENZALUTAMIDE
     Route: 065
  5. ENZALUTAMIDE [Suspect]
     Active Substance: ENZALUTAMIDE
     Route: 065
  6. PANTOPRAZOLE [Suspect]
     Active Substance: PANTOPRAZOLE
     Indication: Product used for unknown indication
  7. PANTOPRAZOLE [Suspect]
     Active Substance: PANTOPRAZOLE
  8. PANTOPRAZOLE [Suspect]
     Active Substance: PANTOPRAZOLE
     Route: 065
  9. TAMSULOSIN [Suspect]
     Active Substance: TAMSULOSIN
     Indication: Product used for unknown indication
     Route: 065
  10. TAMSULOSIN [Suspect]
     Active Substance: TAMSULOSIN
     Route: 065
  11. TAMSULOSIN [Suspect]
     Active Substance: TAMSULOSIN
     Route: 065
  12. DENOSUMAB [Suspect]
     Active Substance: DENOSUMAB
     Indication: Product used for unknown indication
     Route: 065
  13. DENOSUMAB [Suspect]
     Active Substance: DENOSUMAB
  14. DENOSUMAB [Suspect]
     Active Substance: DENOSUMAB
     Route: 065
  15. LEUPROLIDE ACETATE [Suspect]
     Active Substance: LEUPROLIDE ACETATE
     Indication: Product used for unknown indication
     Route: 065
  16. LEUPROLIDE ACETATE [Suspect]
     Active Substance: LEUPROLIDE ACETATE
     Route: 065
  17. LEUPROLIDE ACETATE [Suspect]
     Active Substance: LEUPROLIDE ACETATE
  18. MIRTAZAPINE [Suspect]
     Active Substance: MIRTAZAPINE
     Indication: Product used for unknown indication
     Route: 065
  19. MIRTAZAPINE [Suspect]
     Active Substance: MIRTAZAPINE
     Route: 065
  20. MIRTAZAPINE [Suspect]
     Active Substance: MIRTAZAPINE
     Route: 065
  21. METAMIZOLE [Suspect]
     Active Substance: METAMIZOLE
     Indication: Product used for unknown indication
     Route: 065
  22. METAMIZOLE [Suspect]
     Active Substance: METAMIZOLE
     Route: 065
  23. METAMIZOLE [Suspect]
     Active Substance: METAMIZOLE
     Route: 065

REACTIONS (7)
  - Drug-induced liver injury [Recovered/Resolved]
  - Haematemesis [Recovered/Resolved]
  - Oesophageal ulcer haemorrhage [Recovered/Resolved]
  - Shock haemorrhagic [Recovered/Resolved]
  - Hypocalcaemia [Recovered/Resolved]
  - Hepatotoxicity [Recovered/Resolved]
  - Acute hepatic failure [Recovered/Resolved]
